FAERS Safety Report 10555083 (Version 1)
Quarter: 2014Q4

REPORT INFORMATION
  Report Type: Spontaneous
  Country: US (occurrence: None)
  Receive Date: 20141029
  Receipt Date: 20141029
  Transmission Date: 20150529
  Serious: No
  Sender: FDA-Public Use
  Company Number: None

PATIENT
  Age: 46 Year
  Sex: Female
  Weight: 102.06 kg

DRUGS (1)
  1. XARELTO [Suspect]
     Active Substance: RIVAROXABAN
     Indication: ANTIPHOSPHOLIPID SYNDROME
     Dosage: 1 PILL, TAKEN BY MOUTH
     Dates: start: 20140902, end: 20141028

REACTIONS (1)
  - Abnormal dreams [None]

NARRATIVE: CASE EVENT DATE: 20141028
